FAERS Safety Report 22791883 (Version 3)
Quarter: 2023Q4

REPORT INFORMATION
  Report Type: Report from Study
  Country: US (occurrence: US)
  Receive Date: 20230807
  Receipt Date: 20231229
  Transmission Date: 20240109
  Serious: Yes (Other)
  Sender: FDA-Public Use
  Company Number: US-002147023-NVSC2023US170086

PATIENT
  Sex: Female

DRUGS (4)
  1. COSENTYX [Suspect]
     Active Substance: SECUKINUMAB
     Indication: Psoriasis
     Dosage: 150 MG
     Route: 058
  2. COSENTYX [Suspect]
     Active Substance: SECUKINUMAB
     Indication: Psoriatic arthropathy
     Dosage: 300 MG, UNK
     Route: 058
  3. CLOBETASOL [Suspect]
     Active Substance: CLOBETASOL
     Indication: Psoriasis
     Dosage: UNK
     Route: 061
  4. CLOBETASOL [Suspect]
     Active Substance: CLOBETASOL
     Indication: Psoriatic arthropathy

REACTIONS (17)
  - Non-alcoholic steatohepatitis [Unknown]
  - Aspartate aminotransferase increased [Unknown]
  - Alanine aminotransferase increased [Unknown]
  - Rash [Unknown]
  - Skin plaque [Unknown]
  - Skin mass [Unknown]
  - Guttate psoriasis [Unknown]
  - Papule [Unknown]
  - Pustule [Unknown]
  - Pruritus [Unknown]
  - Erythema [Unknown]
  - Arthralgia [Unknown]
  - Arthritis [Unknown]
  - White blood cell count increased [Unknown]
  - Blood glucose increased [Unknown]
  - Psoriasis [Unknown]
  - Therapeutic product effect incomplete [Unknown]
